FAERS Safety Report 6957025-1 (Version None)
Quarter: 2010Q3

REPORT INFORMATION
  Report Type: 
  Country: None (occurrence: None)
  Receive Date: 20100827
  Receipt Date: 20100827
  Transmission Date: 20110219
  Serious: Yes (Disabling, Other)
  Sender: FDA-Public Use
  Company Number: None

PATIENT
  Age: 40 Year
  Sex: Female
  Weight: 178.7172 kg

DRUGS (6)
  1. LAMICTAL [Suspect]
     Indication: BIPOLAR I DISORDER
     Dosage: 25 MG PO X 14 D THEN 50 MG X 3 D
     Route: 048
     Dates: start: 20100809
  2. WELLBUTRIN [Concomitant]
  3. CITALOPRAM HYDROBROMIDE [Concomitant]
  4. LEVOTHYROXINE [Concomitant]
  5. TRIAMTENE/HCTZ [Concomitant]
  6. ZYRTEC [Concomitant]

REACTIONS (4)
  - HEADACHE [None]
  - NAUSEA [None]
  - PYREXIA [None]
  - VOMITING [None]
